FAERS Safety Report 5292256-0 (Version None)
Quarter: 2007Q2

REPORT INFORMATION
  Report Type: 
  Country: None (occurrence: None)
  Receive Date: 20070410
  Receipt Date: 20070329
  Transmission Date: 20071010
  Serious: Yes (Hospitalization)
  Sender: FDA-Public Use
  Company Number: PHNR2006AU00661

PATIENT
  Age: 77 Year
  Sex: Female

DRUGS (12)
  1. LASIX [Concomitant]
     Dosage: 40 MG, UNK
  2. LANOXIN [Concomitant]
     Dosage: 125 MG, UNK
  3. ZOTON [Concomitant]
     Dosage: 30 MG, NOCTE
  4. ZOCOR [Concomitant]
     Dosage: 10 MG, NOCTE
  5. SINEMET CR [Concomitant]
     Dosage: 1 TABLET (200 MG) NOCTE
     Dates: start: 19991201
  6. CABASER [Concomitant]
     Dosage: 2 MG, NOCTE
     Dates: start: 20030109
  7. DIAZEPAM [Concomitant]
     Dosage: 2.5 MG, NOCTE
  8. WARFARIN SODIUM [Concomitant]
     Dosage: 2/3MG ALTERNATING
  9. LEXAPRO [Suspect]
     Dosage: 10 MG, MANE
  10. STALEVO 100 [Suspect]
     Indication: PARKINSON'S DISEASE
     Dosage: 6 TABLETS (100/25/200MG) PER DAY
     Dates: start: 20060130, end: 20060301
  11. SINEMET [Concomitant]
     Dosage: 100/25 X 5 OR 6 PER DAY
  12. SYMMETREL [Concomitant]
     Dosage: 1 TABLET BD
     Dates: start: 20030731

REACTIONS (4)
  - AMNESIA [None]
  - CONFUSIONAL STATE [None]
  - FALL [None]
  - HALLUCINATION [None]
